FAERS Safety Report 24915499 (Version 1)
Quarter: 2025Q1

REPORT INFORMATION
  Report Type: Report from Study
  Country: US (occurrence: US)
  Receive Date: 20250203
  Receipt Date: 20250203
  Transmission Date: 20250408
  Serious: Yes (Death, Other)
  Sender: ACADIA PHARMACEUTICALS
  Company Number: US-ACADIA PHARMACEUTICALS INC.-ACA-2025-PIM-000920

PATIENT
  Age: 74 Year
  Sex: Male

DRUGS (15)
  1. NUPLAZID [Suspect]
     Active Substance: PIMAVANSERIN TARTRATE
     Indication: Parkinson^s disease
     Dosage: 34 MILLIGRAM, QD
     Route: 048
     Dates: start: 20240928
  2. NUPLAZID [Suspect]
     Active Substance: PIMAVANSERIN TARTRATE
     Indication: Dyskinesia
  3. NUPLAZID [Suspect]
     Active Substance: PIMAVANSERIN TARTRATE
     Indication: On and off phenomenon
  4. ALEVE [Concomitant]
     Active Substance: NAPROXEN SODIUM
  5. FARXIGA [Concomitant]
     Active Substance: DAPAGLIFLOZIN PROPANEDIOL
  6. FUROSEMIDE [Concomitant]
     Active Substance: FUROSEMIDE
  7. GOCOVRI [Concomitant]
     Active Substance: AMANTADINE
  8. LINZESS [Concomitant]
     Active Substance: LINACLOTIDE
  9. MIDODRINE [Concomitant]
     Active Substance: MIDODRINE
  10. NAPROXEN [Concomitant]
     Active Substance: NAPROXEN
  11. NOURIANZ [Concomitant]
     Active Substance: ISTRADEFYLLINE
  12. RIVASTIGMINE [Concomitant]
     Active Substance: RIVASTIGMINE
  13. RYTARY [Concomitant]
     Active Substance: CARBIDOPA\LEVODOPA
  14. SODIUM CHLORIDE [Concomitant]
     Active Substance: SODIUM CHLORIDE
  15. SINEMET [Concomitant]
     Active Substance: CARBIDOPA\LEVODOPA

REACTIONS (1)
  - Parkinson^s disease [Fatal]

NARRATIVE: CASE EVENT DATE: 20250122
